FAERS Safety Report 6078236-6 (Version None)
Quarter: 2009Q1

REPORT INFORMATION
  Report Type: 
  Country: None (occurrence: None)
  Receive Date: 20090213
  Receipt Date: 20090203
  Transmission Date: 20090719
  Serious: Yes (Death)
  Sender: FDA-Public Use
  Company Number: US-ELI_LILLY_AND_COMPANY-US200902001145

PATIENT
  Age: 36 Year
  Sex: Female

DRUGS (11)
  1. ZYPREXA [Suspect]
     Dosage: 15 MG, DAILY (1/D)
  2. LIPITOR [Concomitant]
  3. SOMA [Concomitant]
  4. PREVACID [Concomitant]
  5. ALLEGRA [Concomitant]
  6. METRONIDAZOLE [Concomitant]
  7. CLONAZEPAM [Concomitant]
  8. PROPOXYPHENE HCL CAP [Concomitant]
  9. CARBAMAZEPINE [Concomitant]
  10. BUSPIRONE HCL [Concomitant]
  11. CELEXA [Concomitant]

REACTIONS (1)
  - DRUG TOXICITY [None]
